FAERS Safety Report 11080417 (Version 2)
Quarter: 2017Q3

REPORT INFORMATION
  Report Type: Report from Study
  Country: US (occurrence: US)
  Receive Date: 20150430
  Receipt Date: 20170921
  Transmission Date: 20171127
  Serious: Yes (Other)
  Sender: FDA-Public Use
  Company Number: US-SA-2013SA109340

PATIENT
  Age: 61 Year
  Sex: Female
  Weight: 52.1 kg

DRUGS (1)
  1. AUBAGIO [Suspect]
     Active Substance: TERIFLUNOMIDE
     Indication: MULTIPLE SCLEROSIS
     Route: 048
     Dates: start: 20131021, end: 201707

REACTIONS (12)
  - Sleep disorder [Not Recovered/Not Resolved]
  - Clumsiness [Unknown]
  - Barrett^s oesophagus [Unknown]
  - Oedema peripheral [Not Recovered/Not Resolved]
  - Skin discolouration [Not Recovered/Not Resolved]
  - Decreased appetite [Unknown]
  - Multiple sclerosis relapse [Recovering/Resolving]
  - Therapeutic response unexpected [Unknown]
  - Gastrooesophageal reflux disease [Unknown]
  - Acne [Unknown]
  - Vomiting [Unknown]
  - Nausea [Unknown]

NARRATIVE: CASE EVENT DATE: 20131022
